FAERS Safety Report 6591352-5 (Version None)
Quarter: 2010Q1

REPORT INFORMATION
  Report Type: 
  Country: None (occurrence: None)
  Receive Date: 20100219
  Receipt Date: 20100211
  Transmission Date: 20100710
  Serious: Yes (Other)
  Sender: FDA-Public Use
  Company Number: US-ABBOTT-10P-163-0625859-00

PATIENT
  Age: 2 Year
  Sex: Male

DRUGS (1)
  1. SYNTHROID [Suspect]
     Indication: ACCIDENTAL EXPOSURE
     Dosage: 100MCG
     Dates: start: 20100211, end: 20100211

REACTIONS (2)
  - ACCIDENTAL EXPOSURE [None]
  - EXPIRED DRUG ADMINISTERED [None]
